FAERS Safety Report 7919605 (Version 3)
Quarter: 2013Q4

REPORT INFORMATION
  Report Type: Spontaneous
  Country: US (occurrence: US)
  Receive Date: 20110429
  Receipt Date: 20131223
  Transmission Date: 20140711
  Serious: Yes (Hospitalization, Other)
  Sender: FDA-Public Use
  Company Number: US-BAYER-2010-002540

PATIENT
  Age: 38 Year
  Sex: Female
  Weight: 67.12 kg

DRUGS (7)
  1. YASMIN [Suspect]
     Dosage: UNK
     Dates: start: 200707, end: 201003
  2. YAZ [Suspect]
     Dosage: UNK
     Dates: start: 200707, end: 201003
  3. OCELLA [Suspect]
     Dosage: UNK
     Dates: start: 200707, end: 201003
  4. IRON [Concomitant]
  5. HYDROCODONE W/APAP [Concomitant]
  6. FAMOTIDINE [Concomitant]
     Dosage: 20 MG, BID
  7. PROMETHAZINE [Concomitant]
     Dosage: 25 MG, UNK

REACTIONS (3)
  - Gallbladder disorder [None]
  - Cholecystitis chronic [None]
  - Biliary colic [None]
